FAERS Safety Report 8400303 (Version 2)
Quarter: 2013Q1

REPORT INFORMATION
  Report Type: Spontaneous
  Country: US (occurrence: US)
  Receive Date: 20120210
  Receipt Date: 20130219
  Transmission Date: 20140127
  Serious: Yes (Other)
  Sender: FDA-Public Use
  Company Number: US-BRISTOL-MYERS SQUIBB COMPANY-16311177

PATIENT
  Age: 65 Year
  Sex: Male

DRUGS (4)
  1. ORENCIA [Suspect]
     Indication: RHEUMATOID ARTHRITIS
     Route: 042
     Dates: start: 201009
  2. LEFLUNOMIDE [Concomitant]
  3. ZOLOFT [Concomitant]
  4. SYNTHROID [Concomitant]

REACTIONS (1)
  - Skin cancer [Unknown]
